FAERS Safety Report 4842994-6 (Version None)
Quarter: 2005Q4

REPORT INFORMATION
  Report Type: 
  Country: None (occurrence: None)
  Receive Date: 20051201
  Receipt Date: 20050311
  Transmission Date: 20060501
  Serious: Yes (Hospitalization)
  Sender: FDA-Public Use
  Company Number: US-ROCHE-398687

PATIENT
  Age: 49 Year
  Sex: Male
  Weight: 111.6 kg

DRUGS (4)
  1. PEGASYS [Suspect]
     Indication: HEPATITIS C
     Route: 058
     Dates: start: 20040310, end: 20040924
  2. COPEGUS [Suspect]
     Indication: HEPATITIS C
     Dosage: 2 DOSE FORMS AM AND 3 DOSE FORMS PM.
     Route: 048
     Dates: start: 20040310, end: 20040924
  3. COREG [Concomitant]
     Indication: HYPERTENSION
     Route: 048
     Dates: start: 20041215
  4. ANTIDEPRESSANT NOS [Concomitant]
     Indication: PROPHYLAXIS
     Route: 048
     Dates: start: 20040415

REACTIONS (17)
  - ADRENAL MASS [None]
  - ATRIAL FIBRILLATION [None]
  - BACK PAIN [None]
  - BLOOD GLUCOSE INCREASED [None]
  - DIARRHOEA [None]
  - EOSINOPHIL COUNT DECREASED [None]
  - GASTROOESOPHAGEAL REFLUX DISEASE [None]
  - HAEMATOCRIT DECREASED [None]
  - HAEMOGLOBIN DECREASED [None]
  - HYPERTENSION [None]
  - HYPOGONADISM MALE [None]
  - INTESTINAL CYST [None]
  - LIBIDO DECREASED [None]
  - LIPOMA [None]
  - PITUITARY TUMOUR BENIGN [None]
  - POLYURIA [None]
  - RED BLOOD CELL COUNT DECREASED [None]
